FAERS Safety Report 8272736-6 (Version None)
Quarter: 2012Q2

REPORT INFORMATION
  Report Type: 
  Country: None (occurrence: None)
  Receive Date: 20120411
  Receipt Date: 20120327
  Transmission Date: 20120825
  Serious: Yes (Other)
  Sender: FDA-Public Use
  Company Number: CO-BAXTER-2012BAX001221

PATIENT
  Sex: Male

DRUGS (2)
  1. DIANEAL PD-2 CON DEXTROSA AL 2,5%. [Suspect]
     Indication: PERITONEAL DIALYSIS
     Route: 033
  2. DIANEAL PD-2 CON DEXTROSA AL 2,5%. [Suspect]
     Route: 033

REACTIONS (1)
  - FUNGAL PERITONITIS [None]
